FAERS Safety Report 10818291 (Version 3)
Quarter: 2016Q2

REPORT INFORMATION
  Report Type: Spontaneous
  Country: DK (occurrence: DK)
  Receive Date: 20150218
  Receipt Date: 20160616
  Transmission Date: 20160815
  Serious: Yes (Hospitalization)
  Sender: FDA-Public Use
  Company Number: DK-PFIZER INC-2015056993

PATIENT
  Age: 50 Year
  Sex: Female

DRUGS (2)
  1. PREDNISOLONE. [Concomitant]
     Active Substance: PREDNISOLONE
     Indication: RHEUMATIC DISORDER
     Dosage: 37.5 MG, 1X/DAY
     Dates: start: 201410, end: 20150211
  2. SALAZOPYRIN EN-TABS [Suspect]
     Active Substance: SULFASALAZINE
     Indication: RHEUMATIC DISORDER
     Dosage: 500 MG, 2X/DAY
     Route: 048
     Dates: start: 20150118, end: 20150201

REACTIONS (12)
  - Headache [Recovered/Resolved]
  - Thrombocytopenia [Recovered/Resolved]
  - Lymphopenia [Recovered/Resolved]
  - Urticaria [Recovered/Resolved]
  - Muscular weakness [Recovered/Resolved]
  - Pyrexia [Recovered/Resolved]
  - Photophobia [Recovered/Resolved]
  - Nausea [Recovered/Resolved]
  - Dizziness [Recovered/Resolved]
  - Pruritus generalised [Recovered/Resolved]
  - Myalgia [Recovered/Resolved]
  - C-reactive protein increased [Recovered/Resolved]

NARRATIVE: CASE EVENT DATE: 20150201
